FAERS Safety Report 6030526-9 (Version None)
Quarter: 2009Q1

REPORT INFORMATION
  Report Type: 
  Country: None (occurrence: None)
  Receive Date: 20090106
  Receipt Date: 20090106
  Transmission Date: 20090719
  Serious: No
  Sender: FDA-Public Use
  Company Number: None

PATIENT
  Sex: Female

DRUGS (2)
  1. FLUOROURACIL [Suspect]
     Dosage: 3975 MG
  2. LEUCOVORIN CALCIUM [Suspect]
     Dosage: 185 MG

REACTIONS (1)
  - NEUTROPHIL COUNT DECREASED [None]
